FAERS Safety Report 17495166 (Version 1)
Quarter: 2020Q1

REPORT INFORMATION
  Report Type: Spontaneous
  Country: US (occurrence: US)
  Receive Date: 20200303
  Receipt Date: 20200303
  Transmission Date: 20200409
  Serious: Yes (Other)
  Sender: FDA-Public Use
  Company Number: None

PATIENT
  Age: 81 Year
  Sex: Female

DRUGS (2)
  1. ESTRADIOL VAGINAL CREAM (GENERIC ESTRACE CREAM) [Suspect]
     Active Substance: ESTRADIOL
     Indication: UTEROVAGINAL PROLAPSE
     Dosage: ?          OTHER FREQUENCY:2-3 X PER WEEK QHS;?
     Route: 067
  2. ESTRADIOL VAGINAL CREAM (GENERIC ESTRACE CREAM) [Suspect]
     Active Substance: ESTRADIOL
     Indication: VAGINAL INFECTION
     Dosage: ?          OTHER FREQUENCY:2-3 X PER WEEK QHS;?
     Route: 067

REACTIONS (4)
  - Application site injury [None]
  - Product physical consistency issue [None]
  - Injury associated with device [None]
  - Product colour issue [None]

NARRATIVE: CASE EVENT DATE: 20200225
